FAERS Safety Report 18633549 (Version 1)
Quarter: 2020Q4

REPORT INFORMATION
  Report Type: Spontaneous
  Country: US (occurrence: US)
  Receive Date: 20201218
  Receipt Date: 20201218
  Transmission Date: 20210114
  Serious: No
  Sender: FDA-Public Use
  Company Number: US-ASTRAZENECA-2020SF58710

PATIENT
  Sex: Female

DRUGS (1)
  1. BREZTRI [Suspect]
     Active Substance: BUDESONIDE\FORMOTEROL\GLYCOPYRRONIUM
     Dosage: DOSE UNKNOWN
     Route: 055

REACTIONS (4)
  - Throat irritation [Unknown]
  - Illness [Unknown]
  - Anxiety [Unknown]
  - Pulmonary pain [Unknown]
